FAERS Safety Report 24200471 (Version 1)
Quarter: 2024Q3

REPORT INFORMATION
  Report Type: Spontaneous
  Country: US (occurrence: US)
  Receive Date: 20240812
  Receipt Date: 20240812
  Transmission Date: 20241017
  Serious: No
  Sender: TEVA
  Company Number: US-TEVA-VS-3228846

PATIENT
  Sex: Female

DRUGS (1)
  1. AMBRISENTAN [Suspect]
     Active Substance: AMBRISENTAN
     Indication: Product used for unknown indication
     Dosage: LAST ADMIN DATE: 6/17/2024
     Route: 048
     Dates: start: 20240613

REACTIONS (7)
  - Vision blurred [Unknown]
  - Product substitution issue [Unknown]
  - Photophobia [Unknown]
  - Ocular discomfort [Unknown]
  - Headache [Unknown]
  - Eye pain [Unknown]
  - Asthenopia [Unknown]

NARRATIVE: CASE EVENT DATE: 20240101
